FAERS Safety Report 11095037 (Version 1)
Quarter: 2015Q2

REPORT INFORMATION
  Report Type: Spontaneous
  Country: US (occurrence: US)
  Receive Date: 20150506
  Receipt Date: 20150506
  Transmission Date: 20150821
  Serious: No
  Sender: FDA-Public Use
  Company Number: US-SA-2014SA051188

PATIENT
  Age: 48 Year
  Sex: Female
  Weight: 244 kg

DRUGS (4)
  1. APIDRA SOLOSTAR [Suspect]
     Active Substance: INSULIN GLULISINE
     Indication: TYPE 2 DIABETES MELLITUS
     Dosage: DOSE:10 UNIT(S)
     Route: 058
     Dates: start: 20140407, end: 20140414
  2. SOLOSTAR [Concomitant]
     Active Substance: DEVICE
  3. APIDRA SOLOSTAR [Suspect]
     Active Substance: INSULIN GLULISINE
     Indication: TYPE 2 DIABETES MELLITUS
     Dosage: DOSE:10 UNIT(S)
     Route: 058
     Dates: start: 201403
  4. LANTUS SOLOSTAR [Concomitant]
     Active Substance: INSULIN GLARGINE

REACTIONS (2)
  - Injection site haemorrhage [Unknown]
  - Injection site pain [Unknown]
